FAERS Safety Report 5421735-8 (Version None)
Quarter: 2007Q3

REPORT INFORMATION
  Report Type: 
  Country: None (occurrence: None)
  Receive Date: 20070725
  Receipt Date: 20070620
  Transmission Date: 20080115
  Serious: Yes (Other)
  Sender: FDA-Public Use
  Company Number: 2007EN000171

PATIENT
  Age: 30 Year
  Sex: Female
  Weight: 81.1939 kg

DRUGS (9)
  1. OPANA ER [Suspect]
     Indication: BACK PAIN
     Dosage: 40 MG;
     Dates: start: 20070501, end: 20070501
  2. OPANA [Suspect]
     Indication: BREAKTHROUGH PAIN
     Dosage: 5 MG;PRN
     Dates: start: 20070501, end: 20070501
  3. PERCOCET [Suspect]
     Indication: BACK PAIN
     Dates: end: 20070501
  4. PERCOCET [Suspect]
     Indication: BACK PAIN
     Dates: start: 20070601
  5. OXYCODONE (5 MG) [Suspect]
     Indication: BACK PAIN
     Dosage: 10 MG;PRN 10 MG;PRN
     Dates: end: 20070501
  6. OXYCODONE (5 MG) [Suspect]
     Indication: BACK PAIN
     Dosage: 10 MG;PRN 10 MG;PRN
     Dates: start: 20070601
  7. OXYCONTIN [Suspect]
     Indication: BACK PAIN
     Dosage: 40 MG;BID 40 MG;BID
     Dates: end: 20070501
  8. OXYCONTIN [Suspect]
     Indication: BACK PAIN
     Dosage: 40 MG;BID 40 MG;BID
     Dates: start: 20070601
  9. MULTIVITAMIN-WOMENS FORMULA [Concomitant]

REACTIONS (6)
  - ABDOMINAL DISTENSION [None]
  - CONSTIPATION [None]
  - DEHYDRATION [None]
  - DYSPEPSIA [None]
  - PYREXIA [None]
  - VOMITING [None]
